FAERS Safety Report 7829219-4 (Version None)
Quarter: 2011Q4

REPORT INFORMATION
  Report Type: 
  Country: None (occurrence: None)
  Receive Date: 20111020
  Receipt Date: 20111011
  Transmission Date: 20120403
  Serious: Yes (Hospitalization)
  Sender: FDA-Public Use
  Company Number: US-ASTRAZENECA-2011SE61552

PATIENT
  Age: 67 Year
  Sex: Female
  Weight: 52 kg

DRUGS (10)
  1. CRESTOR [Suspect]
     Indication: BLOOD CHOLESTEROL INCREASED
     Route: 048
     Dates: end: 20110101
  2. PLAVIX [Concomitant]
     Route: 048
     Dates: start: 20050101, end: 20050101
  3. ATROLIVE [Concomitant]
     Route: 048
     Dates: start: 20050101
  4. ENALAPRIL MALEATE [Suspect]
     Route: 048
     Dates: start: 20050101, end: 20100101
  5. INDAPAMIDE [Concomitant]
     Route: 048
     Dates: start: 20050101
  6. CRESTOR [Suspect]
     Route: 048
     Dates: start: 20110101, end: 20111001
  7. ALPRAZOLAM [Concomitant]
     Route: 048
     Dates: start: 20050101
  8. CALCIUM CARBONATE [Concomitant]
     Route: 048
     Dates: start: 20050101
  9. PLAVIX [Concomitant]
     Route: 048
     Dates: start: 20050101
  10. ENALAPRIL MALEATE [Suspect]
     Route: 048
     Dates: start: 20100101, end: 20100101

REACTIONS (8)
  - MUSCULOSKELETAL STIFFNESS [None]
  - TINNITUS [None]
  - INSOMNIA [None]
  - WEIGHT DECREASED [None]
  - VERTEBRAL ARTERY OCCLUSION [None]
  - CAROTID ARTERY OCCLUSION [None]
  - NASOPHARYNGITIS [None]
  - MEMORY IMPAIRMENT [None]
